FAERS Safety Report 4974966-5 (Version None)
Quarter: 2006Q2

REPORT INFORMATION
  Report Type: 
  Country: None (occurrence: None)
  Receive Date: 20060414
  Receipt Date: 20060414
  Transmission Date: 20061013
  Serious: No
  Sender: FDA-Public Use
  Company Number: None

PATIENT
  Sex: Male
  Weight: 68 kg

DRUGS (3)
  1. CYTARABINE [Suspect]
     Indication: ACUTE MYELOID LEUKAEMIA
     Dosage: 1260 MG
     Dates: start: 20060323, end: 20060331
  2. DAUNORUBICIN HCL [Suspect]
     Dosage: 495 MG
     Dates: start: 20060325, end: 20060327
  3. ETOPOSIDE [Suspect]
     Dosage: 540 MG
     Dates: start: 20060325, end: 20060327

REACTIONS (2)
  - HYPOXIA [None]
  - MUCOSAL INFLAMMATION [None]
